FAERS Safety Report 7803897-8 (Version None)
Quarter: 2011Q4

REPORT INFORMATION
  Report Type: 
  Country: None (occurrence: None)
  Receive Date: 20111010
  Receipt Date: 20111004
  Transmission Date: 20120403
  Serious: Yes (Hospitalization)
  Sender: FDA-Public Use
  Company Number: CA-PFIZER INC-2011237591

PATIENT
  Age: 68 Year
  Sex: Male
  Weight: 68.934 kg

DRUGS (2)
  1. CARVEDILOL [Concomitant]
     Dosage: UNK
  2. IBUPROFEN (ADVIL) [Suspect]
     Indication: BACK PAIN
     Dosage: 200 MG DAILY
     Route: 048
     Dates: start: 20110910, end: 20110901

REACTIONS (1)
  - DYSPNOEA [None]
